FAERS Safety Report 18274220 (Version 2)
Quarter: 2020Q3

REPORT INFORMATION
  Report Type: Spontaneous
  Country: JP (occurrence: JP)
  Receive Date: 20200916
  Receipt Date: 20200924
  Transmission Date: 20201103
  Serious: Yes (Hospitalization)
  Sender: FDA-Public Use
  Company Number: JP-JNJFOC-20200917152

PATIENT
  Age: 80 Year
  Sex: Female

DRUGS (1)
  1. SIMPONI [Suspect]
     Active Substance: GOLIMUMAB
     Indication: RHEUMATOID ARTHRITIS
     Dosage: DOSE UNKNOWN?GOLIMUMAB (GENETICAL RECOMBINATION):50MG
     Route: 058

REACTIONS (2)
  - Fall [Recovered/Resolved]
  - Ulna fracture [Recovered/Resolved]
